FAERS Safety Report 10660342 (Version 6)
Quarter: 2015Q1

REPORT INFORMATION
  Report Type: Spontaneous
  Country: US (occurrence: US)
  Receive Date: 20141217
  Receipt Date: 20150316
  Transmission Date: 20150720
  Serious: No
  Sender: FDA-Public Use
  Company Number: US-GLAXOSMITHKLINE-A1084135A

PATIENT
  Sex: Male

DRUGS (1)
  1. VOTRIENT [Suspect]
     Active Substance: PAZOPANIB HYDROCHLORIDE
     Indication: RENAL CANCER
     Dosage: 800 MG, QD
     Route: 065
     Dates: start: 20121121

REACTIONS (6)
  - Diarrhoea [Unknown]
  - Tooth loss [Unknown]
  - Fatigue [Unknown]
  - Tooth fracture [Unknown]
  - Rash [Unknown]
  - Cardiac disorder [Unknown]
